FAERS Safety Report 13762858 (Version 1)
Quarter: 2017Q3

REPORT INFORMATION
  Report Type: Report from Study
  Country: US (occurrence: US)
  Receive Date: 20170718
  Receipt Date: 20170718
  Transmission Date: 20171127
  Serious: Yes (Other)
  Sender: FDA-Public Use
  Company Number: US-AMGEN-USASL2017105234

PATIENT
  Sex: Female

DRUGS (2)
  1. ENBREL [Suspect]
     Active Substance: ETANERCEPT
     Dosage: 50 MG, QWK
     Route: 065
  2. ENBREL [Suspect]
     Active Substance: ETANERCEPT
     Indication: RHEUMATOID ARTHRITIS
     Dosage: 50 MG, QWK
     Route: 065
     Dates: start: 2007, end: 2014

REACTIONS (11)
  - Cataract operation [Unknown]
  - Optic nerve disorder [Unknown]
  - Lens disorder [Unknown]
  - Pain [Unknown]
  - Sjogren^s syndrome [Unknown]
  - Intentional product misuse [Unknown]
  - Dry mouth [Unknown]
  - Mobility decreased [Unknown]
  - Diplopia [Unknown]
  - Migraine with aura [Unknown]
  - Dry eye [Unknown]

NARRATIVE: CASE EVENT DATE: 2014
